FAERS Safety Report 24899459 (Version 1)
Quarter: 2025Q1

REPORT INFORMATION
  Report Type: Spontaneous
  Country: US (occurrence: US)
  Receive Date: 20250129
  Receipt Date: 20250129
  Transmission Date: 20250409
  Serious: No
  Sender: GILEAD
  Company Number: US-GILEAD-2025-0701247

PATIENT
  Age: 37 Year
  Sex: Male

DRUGS (1)
  1. BIKTARVY [Suspect]
     Active Substance: BICTEGRAVIR SODIUM\EMTRICITABINE\TENOFOVIR ALAFENAMIDE FUMARATE
     Indication: HIV infection
     Route: 065

REACTIONS (3)
  - Road traffic accident [Recovered/Resolved]
  - Brain fog [Not Recovered/Not Resolved]
  - Circumstance or information capable of leading to medication error [Unknown]
